FAERS Safety Report 4818959-7 (Version None)
Quarter: 2005Q4

REPORT INFORMATION
  Report Type: 
  Country: None (occurrence: None)
  Receive Date: 20051101
  Receipt Date: 20051019
  Transmission Date: 20060501
  Serious: Yes (Death)
  Sender: FDA-Public Use
  Company Number: 2005145657

PATIENT
  Sex: Female

DRUGS (8)
  1. PREDNISONE [Suspect]
     Indication: ILL-DEFINED DISORDER
     Dosage: 5 MG
  2. ATROVENT [Suspect]
     Indication: CHRONIC OBSTRUCTIVE PULMONARY DISEASE
     Dosage: 2000 MCG (500 MCG, 4 IN 1 D), INHALATION
     Route: 055
  3. SALBUTAMOL (SALBUTAMOL) [Suspect]
     Indication: ILL-DEFINED DISORDER
     Dosage: 10 MG (2.5 MG, 4 AS NECESSARY), INHALATION
     Route: 055
  4. CARBOCISTEINE (CARBOCISTEINE) [Suspect]
     Indication: ILL-DEFINED DISORDER
     Dosage: 2250 MG (375 MG, 3 IN 1 D), INHALATION
     Route: 055
  5. LEVOFLOXACIN [Suspect]
     Indication: ILL-DEFINED DISORDER
     Dosage: 1000 MG (500 MG, 2 IN 1D)
  6. FUROSEMIDE [Suspect]
     Indication: ILL-DEFINED DISORDER
     Dosage: 40 MG (40 MG, 1 IN 1 D)
  7. TRAMADOL HCL [Suspect]
  8. AMINOPHYLLIN [Concomitant]

REACTIONS (1)
  - INFECTIVE EXACERBATION OF CHRONIC OBSTRUCTIVE AIRWAYS DISEASE [None]
